FAERS Safety Report 19020272 (Version 3)
Quarter: 2021Q2

REPORT INFORMATION
  Report Type: Report from Study
  Country: US (occurrence: US)
  Receive Date: 20210317
  Receipt Date: 20210419
  Transmission Date: 20210717
  Serious: Yes (Death, Hospitalization, Other)
  Sender: FDA-Public Use
  Company Number: US-B.I. PHARMACEUTICALS,INC./RIDGEFIELD-2021-BI-079193

PATIENT
  Sex: Male

DRUGS (2)
  1. OFEV [Suspect]
     Active Substance: NINTEDANIB
     Indication: IDIOPATHIC PULMONARY FIBROSIS
     Dosage: OFEV DOSE 100MG DAILY
     Route: 048
     Dates: start: 20190830
  2. OFEV [Suspect]
     Active Substance: NINTEDANIB
     Dosage: 100MG PO BID
     Route: 048

REACTIONS (8)
  - Pulmonary embolism [Unknown]
  - Thrombosis [Unknown]
  - Haemoptysis [Unknown]
  - Respiration abnormal [Unknown]
  - Death [Fatal]
  - Pneumonia [Unknown]
  - Diarrhoea [Unknown]
  - Weight decreased [Unknown]
